FAERS Safety Report 4780677-1 (Version None)
Quarter: 2005Q3

REPORT INFORMATION
  Report Type: 
  Country: None (occurrence: None)
  Receive Date: 20050926
  Receipt Date: 20050914
  Transmission Date: 20060218
  Serious: Yes (Other)
  Sender: FDA-Public Use
  Company Number: PHBS2005US13793

PATIENT
  Age: 63 Year
  Sex: Male

DRUGS (6)
  1. TERBINAFINE HYDROCHLORIDE (TERBINAFINE HYDROCHLORIDE) CREAM [Suspect]
     Indication: ASPERGILLOSIS
     Dosage: TOPICAL
     Route: 061
  2. AMPHOTERICIN B [Concomitant]
  3. FK 506 (TACROLIMUS) [Concomitant]
  4. ATG (ANTILYMPHOCYTE IMMUNOGLOBULIN) [Concomitant]
  5. PREDNISONE [Concomitant]
  6. METHYLPREDNISOLONE [Concomitant]

REACTIONS (5)
  - DISEASE PROGRESSION [None]
  - ECCHYMOSIS [None]
  - SKIN LESION [None]
  - SKIN NODULE [None]
  - SKIN ULCER [None]
